FAERS Safety Report 9609985 (Version 2)
Quarter: 2013Q4

REPORT INFORMATION
  Report Type: Spontaneous
  Country: US (occurrence: US)
  Receive Date: 20131009
  Receipt Date: 20131009
  Transmission Date: 20140711
  Serious: Yes (Hospitalization)
  Sender: FDA-Public Use
  Company Number: US-B.I. PHARMACEUTICALS,INC./RIDGEFIELD-2013-BI-12329BP

PATIENT
  Age: 77 Year
  Sex: Male
  Weight: 97.52 kg

DRUGS (11)
  1. PRADAXA [Suspect]
     Indication: ANTICOAGULANT THERAPY
     Dates: start: 20110513, end: 20110815
  2. PRADAXA [Suspect]
     Indication: ATRIAL FIBRILLATION
  3. SPIRONOLACTONE [Concomitant]
  4. FUROSEMIDE [Concomitant]
  5. LISINOPRIL [Concomitant]
  6. METOPROLOL [Concomitant]
  7. ATORVASTATIN [Concomitant]
  8. ZETIA [Concomitant]
  9. TAMSULOSIN HCL [Concomitant]
  10. ASPIRIN [Concomitant]
  11. CELERY SEED [Concomitant]

REACTIONS (2)
  - Haematuria [Recovered/Resolved]
  - Haemorrhagic anaemia [Unknown]
